FAERS Safety Report 8238741-0 (Version None)
Quarter: 2012Q1

REPORT INFORMATION
  Report Type: 
  Country: None (occurrence: None)
  Receive Date: 20120327
  Receipt Date: 20120318
  Transmission Date: 20120608
  Serious: Yes (Hospitalization)
  Sender: FDA-Public Use
  Company Number: NL-FRI-1000029362

PATIENT
  Age: 81 Year
  Sex: Female

DRUGS (6)
  1. CITALOPRAM HYDROBROMIDE [Suspect]
     Indication: DEPRESSION
     Route: 048
     Dates: start: 20120101
  2. ALPRAZOLAM [Concomitant]
     Route: 048
  3. LEXAPRO [Suspect]
     Indication: ANXIETY
     Dosage: 10 MG
     Route: 048
     Dates: start: 20120119
  4. CITALOPRAM HYDROBROMIDE [Suspect]
     Indication: ANXIETY
     Dosage: 20 MG
     Route: 048
     Dates: start: 20111214, end: 20120118
  5. LEXAPRO [Suspect]
     Indication: DEPRESSION
  6. OXAZEPAM [Concomitant]

REACTIONS (5)
  - FEELING OF DESPAIR [None]
  - NERVOUSNESS [None]
  - NAUSEA [None]
  - ANXIETY [None]
  - TENSION [None]
